FAERS Safety Report 23791044 (Version 1)
Quarter: 2024Q2

REPORT INFORMATION
  Report Type: Spontaneous
  Country: US (occurrence: US)
  Receive Date: 20240427
  Receipt Date: 20240427
  Transmission Date: 20240715
  Serious: Yes (Other)
  Sender: FDA-Public Use
  Company Number: US-The Proactiv LLC-2153940

PATIENT

DRUGS (6)
  1. COSMETICS [Suspect]
     Active Substance: COSMETICS
     Route: 061
  2. COSMETICS [Suspect]
     Active Substance: COSMETICS
     Route: 061
  3. PROACTIV MD ADAPALENE ACNE TREATMENT [Concomitant]
     Active Substance: ADAPALENE
     Route: 061
  4. DEVICE [Suspect]
     Active Substance: DEVICE
     Route: 061
  5. COSMETICS [Suspect]
     Active Substance: COSMETICS
     Route: 061
  6. COSMETICS [Suspect]
     Active Substance: COSMETICS
     Route: 061

REACTIONS (1)
  - Skin cancer [Unknown]
